FAERS Safety Report 21285522 (Version 1)
Quarter: 2022Q3

REPORT INFORMATION
  Report Type: Spontaneous
  Country: US (occurrence: US)
  Receive Date: 20220902
  Receipt Date: 20220902
  Transmission Date: 20221026
  Serious: No
  Sender: FDA-Public Use
  Company Number: US-BIOGEN-2019BI00733181

PATIENT
  Sex: Female

DRUGS (5)
  1. TYSABRI [Suspect]
     Active Substance: NATALIZUMAB
     Indication: Multiple sclerosis
     Route: 050
     Dates: start: 20190504
  2. TYSABRI [Suspect]
     Active Substance: NATALIZUMAB
     Route: 050
     Dates: start: 20170706, end: 20180505
  3. TYSABRI [Suspect]
     Active Substance: NATALIZUMAB
     Route: 050
     Dates: end: 20191204
  4. TYSABRI [Suspect]
     Active Substance: NATALIZUMAB
     Route: 050
  5. TYSABRI [Suspect]
     Active Substance: NATALIZUMAB
     Dosage: 300 MILLIGRAM PER GRAM
     Route: 050
     Dates: start: 20180721

REACTIONS (3)
  - Prescribed underdose [Unknown]
  - Stress [Unknown]
  - Hemiparesis [Recovered/Resolved]
